FAERS Safety Report 7207310-3 (Version None)
Quarter: 2010Q4

REPORT INFORMATION
  Report Type: 
  Country: None (occurrence: None)
  Receive Date: 20101221
  Receipt Date: 20101210
  Transmission Date: 20110411
  Serious: Yes (Hospitalization)
  Sender: FDA-Public Use
  Company Number: 023656

PATIENT
  Sex: Female

DRUGS (1)
  1. CIMZIA [Suspect]
     Indication: CROHN'S DISEASE
     Dosage: 400MG/ML SUBCUTANEOUS
     Route: 058
     Dates: start: 20090101, end: 20100101

REACTIONS (3)
  - CHILLS [None]
  - PAIN [None]
  - PYREXIA [None]
